FAERS Safety Report 12992520 (Version 2)
Quarter: 2016Q4

REPORT INFORMATION
  Report Type: Spontaneous
  Country: BR (occurrence: BR)
  Receive Date: 20161202
  Receipt Date: 20161214
  Transmission Date: 20170207
  Serious: Yes (Hospitalization, Other)
  Sender: FDA-Public Use
  Company Number: BR-ABBVIE-16K-020-1793874-00

PATIENT
  Age: 78 Year
  Sex: Female
  Weight: 58 kg

DRUGS (4)
  1. DEFLAZACORT [Concomitant]
     Active Substance: DEFLAZACORT
     Indication: ARTHRITIS
     Route: 048
     Dates: start: 1996
  2. BENICAR ANLO [Concomitant]
     Active Substance: AMLODIPINE BESYLATE\OLMESARTAN MEDOXOMIL
     Indication: HYPERTENSION
     Dosage: FORM STRENGHT: MEDOXOMIL OLMESARTAN 40 MG/AMLODIPINE 5 MG
     Route: 048
     Dates: start: 2014
  3. CENTRUM [Concomitant]
     Active Substance: VITAMINS
     Indication: PRODUCT USED FOR UNKNOWN INDICATION
     Route: 048
     Dates: start: 20161116
  4. HUMIRA [Suspect]
     Active Substance: ADALIMUMAB
     Indication: PRODUCT USED FOR UNKNOWN INDICATION
     Route: 058
     Dates: start: 20161013, end: 20161013

REACTIONS (17)
  - Aortic arteriosclerosis [Recovered/Resolved]
  - Anaemia [Recovered/Resolved]
  - Malnutrition [Recovered/Resolved]
  - Hypophagia [Recovered/Resolved]
  - PO2 decreased [Recovered/Resolved]
  - Blood urea increased [Recovered/Resolved]
  - Nephrolithiasis [Recovered/Resolved]
  - Osteoarthritis [Recovered/Resolved]
  - Somnolence [Recovered/Resolved]
  - Dehydration [Recovered/Resolved]
  - Hypokalaemia [Recovered/Resolved]
  - Decreased appetite [Recovered/Resolved]
  - Urinary tract infection [Recovered/Resolved]
  - Blood potassium decreased [Recovered/Resolved]
  - Diarrhoea [Recovered/Resolved]
  - Kidney fibrosis [Recovered/Resolved]
  - Blood thromboplastin decreased [Recovered/Resolved]

NARRATIVE: CASE EVENT DATE: 2016
